FAERS Safety Report 10441091 (Version 1)
Quarter: 2014Q3

REPORT INFORMATION
  Report Type: Spontaneous
  Country: US (occurrence: None)
  Receive Date: 20140905
  Receipt Date: 20140905
  Transmission Date: 20150326
  Serious: Yes (Hospitalization)
  Sender: FDA-Public Use
  Company Number: 2509568

PATIENT
  Age: 25 Year
  Sex: Male
  Weight: 63 kg

DRUGS (8)
  1. HYDRALAZINE [Concomitant]
     Active Substance: HYDRALAZINE HYDROCHLORIDE
  2. NIFEDIPINE. [Concomitant]
     Active Substance: NIFEDIPINE
  3. MINOXIDIL. [Concomitant]
     Active Substance: MINOXIDIL
  4. CINACALCET [Concomitant]
     Active Substance: CINACALCET
  5. PROPOFOL. [Concomitant]
     Active Substance: PROPOFOL
  6. BUPIVACAINE HYDROCHLORIDE. [Suspect]
     Active Substance: BUPIVACAINE HYDROCHLORIDE
     Indication: NERVE BLOCK
  7. LABETALOL [Concomitant]
     Active Substance: LABETALOL\LABETALOL HYDROCHLORIDE
  8. LISINOPRIL. [Concomitant]
     Active Substance: LISINOPRIL

REACTIONS (10)
  - Speech disorder [None]
  - Localised oedema [None]
  - Brachiocephalic vein stenosis [None]
  - Respiratory tract oedema [None]
  - Vasodilatation [None]
  - Glossitis [None]
  - Face oedema [None]
  - Superior vena cava syndrome [None]
  - Jugular vein thrombosis [None]
  - Scleral oedema [None]
